FAERS Safety Report 4499597-5 (Version None)
Quarter: 2004Q4

REPORT INFORMATION
  Report Type: 
  Country: None (occurrence: None)
  Receive Date: 20041112
  Receipt Date: 20041102
  Transmission Date: 20050328
  Serious: Yes (Other)
  Sender: FDA-Public Use
  Company Number: US-JNJFOC-20040603954

PATIENT
  Sex: Female
  Weight: 53.52 kg

DRUGS (9)
  1. REMICADE [Suspect]
     Indication: RHEUMATOID ARTHRITIS
     Dosage: PATIENT ON INFLIXIMAB FOR THREE YEARS.
     Route: 042
  2. TYLENOL [Suspect]
     Route: 065
  3. TYLENOL [Suspect]
     Route: 065
  4. CELEBREX [Suspect]
     Indication: OSTEOARTHRITIS
  5. CELEBREX [Suspect]
     Indication: RHEUMATOID ARTHRITIS
  6. ASPIRIN [Suspect]
     Indication: OSTEOARTHRITIS
  7. ASPIRIN [Suspect]
     Indication: RHEUMATOID ARTHRITIS
     Dosage: ^MANY YEARS^  6-8 PER DAY
  8. METHOTREXATE [Concomitant]
     Route: 049
  9. METHOTREXATE [Concomitant]
     Indication: RHEUMATOID ARTHRITIS
     Route: 049

REACTIONS (5)
  - DRUG TOXICITY [None]
  - HAEMATURIA [None]
  - INFUSION RELATED REACTION [None]
  - RENAL PAPILLARY NECROSIS [None]
  - URETHRAL POLYP [None]
